FAERS Safety Report 21497142 (Version 1)
Quarter: 2022Q4

REPORT INFORMATION
  Report Type: Spontaneous
  Country: MM (occurrence: MM)
  Receive Date: 20221023
  Receipt Date: 20221023
  Transmission Date: 20230113
  Serious: Yes (Death, Hospitalization, Other)
  Sender: FDA-Public Use
  Company Number: MM-JNJFOC-20221022559

PATIENT
  Age: 44 Year
  Sex: Female
  Weight: 45 kg

DRUGS (37)
  1. BEDAQUILINE [Suspect]
     Active Substance: BEDAQUILINE
     Indication: Tuberculosis
     Route: 048
     Dates: start: 20210831, end: 202109
  2. BEDAQUILINE [Suspect]
     Active Substance: BEDAQUILINE
     Route: 048
     Dates: end: 20220924
  3. BEDAQUILINE [Suspect]
     Active Substance: BEDAQUILINE
     Route: 048
     Dates: start: 202109, end: 20211112
  4. BEDAQUILINE [Suspect]
     Active Substance: BEDAQUILINE
     Route: 048
     Dates: start: 20211130, end: 20220224
  5. BEDAQUILINE [Suspect]
     Active Substance: BEDAQUILINE
     Route: 048
     Dates: start: 20220307, end: 20220415
  6. BEDAQUILINE [Suspect]
     Active Substance: BEDAQUILINE
     Route: 048
     Dates: start: 20220509
  7. LEVOFLOXACIN [Suspect]
     Active Substance: LEVOFLOXACIN
     Indication: Tuberculosis
     Route: 065
     Dates: start: 20210831, end: 20220224
  8. LEVOFLOXACIN [Suspect]
     Active Substance: LEVOFLOXACIN
     Route: 065
     Dates: start: 20220307, end: 20220415
  9. LEVOFLOXACIN [Suspect]
     Active Substance: LEVOFLOXACIN
     Route: 065
     Dates: start: 20220509
  10. CLOFAZIMINE [Suspect]
     Active Substance: CLOFAZIMINE
     Indication: Tuberculosis
     Route: 065
     Dates: start: 20210831, end: 20211112
  11. CLOFAZIMINE [Suspect]
     Active Substance: CLOFAZIMINE
     Route: 065
     Dates: start: 20211126, end: 20220224
  12. CLOFAZIMINE [Suspect]
     Active Substance: CLOFAZIMINE
     Route: 065
     Dates: start: 20220307, end: 20220415
  13. CLOFAZIMINE [Suspect]
     Active Substance: CLOFAZIMINE
     Route: 065
     Dates: start: 20220509
  14. PYRAZINAMIDE [Suspect]
     Active Substance: PYRAZINAMIDE
     Indication: Tuberculosis
     Route: 065
     Dates: start: 20210831, end: 20220307
  15. CYCLOSERINE [Suspect]
     Active Substance: CYCLOSERINE
     Indication: Tuberculosis
     Route: 065
     Dates: start: 20210831, end: 20220224
  16. CYCLOSERINE [Suspect]
     Active Substance: CYCLOSERINE
     Route: 065
     Dates: start: 20220307, end: 20220415
  17. CYCLOSERINE [Suspect]
     Active Substance: CYCLOSERINE
     Route: 065
     Dates: start: 20220509
  18. DELAMANID [Suspect]
     Active Substance: DELAMANID
     Indication: Tuberculosis
     Route: 065
     Dates: start: 20220214, end: 20220224
  19. DELAMANID [Suspect]
     Active Substance: DELAMANID
     Route: 065
     Dates: start: 20220307, end: 20220415
  20. DELAMANID [Suspect]
     Active Substance: DELAMANID
     Route: 065
     Dates: start: 20220509
  21. IMIPENEM [Suspect]
     Active Substance: IMIPENEM
     Indication: Tuberculosis
     Route: 065
     Dates: start: 20220214, end: 20220224
  22. IMIPENEM [Suspect]
     Active Substance: IMIPENEM
     Route: 065
     Dates: start: 20220307, end: 20220415
  23. IMIPENEM [Suspect]
     Active Substance: IMIPENEM
     Route: 065
     Dates: start: 20220509, end: 20220606
  24. AMOXICILLIN\CLAVULANATE POTASSIUM [Suspect]
     Active Substance: AMOXICILLIN\CLAVULANATE POTASSIUM
     Indication: Tuberculosis
     Route: 065
  25. ALBUTEROL [Concomitant]
     Active Substance: ALBUTEROL
     Indication: Product used for unknown indication
     Dosage: 2 PUFF
     Route: 065
  26. COTRIMOXAZOLE [Concomitant]
     Active Substance: SULFAMETHOXAZOLE\TRIMETHOPRIM
     Indication: Osteogenesis imperfecta
     Route: 065
     Dates: start: 20210819, end: 20220924
  27. DOLUTEGRAVIR SODIUM;LAMIVUDINE;TENOFOVIR DISOPROXIL FUMARATE [Concomitant]
     Indication: HIV infection
     Route: 065
     Dates: start: 20190122, end: 20220203
  28. ASPIRIN [Concomitant]
     Active Substance: ASPIRIN
     Indication: Electrocardiogram ST segment depression
     Dosage: 1 CM
     Route: 065
     Dates: start: 20211102, end: 20220924
  29. OMEPRAZOLE [Concomitant]
     Active Substance: OMEPRAZOLE
     Indication: Product used for unknown indication
     Route: 048
  30. VITAMIN B6 [Concomitant]
     Active Substance: PYRIDOXINE HYDROCHLORIDE
     Indication: Nutritional supplementation
     Route: 065
  31. DACLATASVIR\SOFOSBUVIR [Concomitant]
     Active Substance: DACLATASVIR\SOFOSBUVIR
     Indication: Hepatitis C
     Route: 065
     Dates: start: 20190307, end: 20190530
  32. EFAVIRENZ\LAMIVUDINE\TENOFOVIR DISOPROXIL FUMARATE [Concomitant]
     Active Substance: EFAVIRENZ\LAMIVUDINE\TENOFOVIR DISOPROXIL FUMARATE
     Indication: HIV infection
     Route: 065
     Dates: start: 20140113, end: 20190122
  33. PYRIDOXINE [Concomitant]
     Active Substance: PYRIDOXINE
     Indication: Prophylaxis
     Route: 065
     Dates: start: 20200121, end: 20220924
  34. VITAMINS [Concomitant]
     Active Substance: VITAMINS
     Indication: Nutritional supplementation
     Route: 065
     Dates: start: 20220518, end: 20220924
  35. UDIHEP [Concomitant]
     Indication: Nutritional supplementation
     Route: 065
     Dates: start: 20220518, end: 20220924
  36. PROPRANOLOL [Concomitant]
     Active Substance: PROPRANOLOL HYDROCHLORIDE
     Indication: Nutritional supplementation
     Route: 065
     Dates: start: 20220518, end: 20220924
  37. FERROUS SULFATE ANHYDROUS [Concomitant]
     Active Substance: FERROUS SULFATE ANHYDROUS
     Indication: Nutritional supplementation
     Route: 065

REACTIONS (11)
  - Respiratory failure [Fatal]
  - Bone tuberculosis [Fatal]
  - Electrocardiogram QT prolonged [Unknown]
  - Hepatitis [Not Recovered/Not Resolved]
  - Anaemia of chronic disease [Unknown]
  - Insomnia [Recovering/Resolving]
  - Depressed mood [Unknown]
  - Constipation [Recovered/Resolved]
  - Cholelithiasis [Unknown]
  - Off label use [Unknown]
  - Intentional product use issue [Unknown]

NARRATIVE: CASE EVENT DATE: 20211116
